FAERS Safety Report 15073421 (Version 2)
Quarter: 2018Q3

REPORT INFORMATION
  Report Type: Spontaneous
  Country: US (occurrence: US)
  Receive Date: 20180627
  Receipt Date: 20180817
  Transmission Date: 20181010
  Serious: No
  Sender: FDA-Public Use
  Company Number: US-PFIZER INC-2018258006

PATIENT
  Age: 61 Year
  Sex: Male

DRUGS (5)
  1. LUMIGAN [Concomitant]
     Active Substance: BIMATOPROST
     Indication: SIGHT DISABILITY
     Dosage: 1 DF, 1X/DAY 1 DROP IN LEFT EYE, EACH NIGHT
     Dates: start: 2017
  2. VIAGRA [Suspect]
     Active Substance: SILDENAFIL CITRATE
     Indication: BLOOD TESTOSTERONE DECREASED
     Dosage: 100 MG, AS NEEDED (TAKE 100 MG WHEN I NEED IT)
     Route: 048
  3. VIAGRA [Suspect]
     Active Substance: SILDENAFIL CITRATE
     Indication: ERECTILE DYSFUNCTION
  4. SEROQUEL [Concomitant]
     Active Substance: QUETIAPINE FUMARATE
     Indication: FLASHBACK
     Dosage: 100 MG, AS NEEDED; 100MG TABLET BY MOUTH, EVERY NIGHT, AS NEEDED
     Route: 048
     Dates: start: 2015
  5. CLONAZEPAM. [Concomitant]
     Active Substance: CLONAZEPAM
     Indication: ANXIETY
     Dosage: 1 MG, AS NEEDED; 1MG TABLET BY MOUTH, ONCE A DAY, AS NEEDED
     Route: 048
     Dates: start: 2014

REACTIONS (1)
  - Dizziness [Unknown]
